FAERS Safety Report 18843683 (Version 1)
Quarter: 2021Q1

REPORT INFORMATION
  Report Type: Report from Study
  Country: US (occurrence: US)
  Receive Date: 20210203
  Receipt Date: 20210203
  Transmission Date: 20210419
  Serious: No
  Sender: FDA-Public Use
  Company Number: US-EXELIXIS-CABO-19026452

PATIENT
  Sex: Male

DRUGS (13)
  1. CABOMETYX [Suspect]
     Active Substance: CABOZANTINIB S-MALATE
     Indication: METASTASES TO LUNG
     Dosage: 40 MG, QD
     Route: 048
     Dates: start: 20190627
  2. LONSURF [Concomitant]
     Active Substance: TIPIRACIL HYDROCHLORIDE\TRIFLURIDINE
  3. DURAGESIC [Concomitant]
     Active Substance: FENTANYL
  4. CABOMETYX [Suspect]
     Active Substance: CABOZANTINIB S-MALATE
     Indication: RENAL CANCER
     Dosage: 60 MG, QD
     Route: 048
     Dates: start: 20170621
  5. COLCRYS [Concomitant]
     Active Substance: COLCHICINE
  6. MEGESTROL ACETATE. [Concomitant]
     Active Substance: MEGESTROL ACETATE
  7. LISINOPRIL. [Concomitant]
     Active Substance: LISINOPRIL
  8. NORVASC [Concomitant]
     Active Substance: AMLODIPINE BESYLATE
  9. ONDANSETRON [Concomitant]
     Active Substance: ONDANSETRON
  10. LOMOTIL [Concomitant]
     Active Substance: ATROPINE SULFATE\DIPHENOXYLATE HYDROCHLORIDE
  11. NORCO [Concomitant]
     Active Substance: ACETAMINOPHEN\HYDROCODONE BITARTRATE
  12. VITAMIN D [Concomitant]
     Active Substance: VITAMIN D NOS
  13. PROMETHAZINE [Concomitant]
     Active Substance: PROMETHAZINE HYDROCHLORIDE

REACTIONS (1)
  - Urinary tract infection [Unknown]
